FAERS Safety Report 22290422 (Version 1)
Quarter: 2023Q2

REPORT INFORMATION
  Report Type: Spontaneous
  Country: US (occurrence: US)
  Receive Date: 20230505
  Receipt Date: 20230505
  Transmission Date: 20230722
  Serious: Yes (Hospitalization)
  Sender: FDA-Public Use
  Company Number: US-BAUSCH-BL-2023-006758

PATIENT
  Sex: Female

DRUGS (1)
  1. DIURIL [Suspect]
     Active Substance: CHLOROTHIAZIDE
     Indication: Cardiac failure congestive
     Route: 065

REACTIONS (2)
  - Hospitalisation [Unknown]
  - Product availability issue [Unknown]
